FAERS Safety Report 6485590-X (Version None)
Quarter: 2009Q4

REPORT INFORMATION
  Report Type: 
  Country: None (occurrence: None)
  Receive Date: 20091209
  Receipt Date: 20090701
  Transmission Date: 20100525
  Serious: No
  Sender: FDA-Public Use
  Company Number: US-AMGEN-KDL354002

PATIENT
  Sex: Female

DRUGS (1)
  1. ENBREL [Suspect]
     Indication: RHEUMATOID ARTHRITIS
     Route: 058
     Dates: start: 20081024

REACTIONS (10)
  - ARTHRALGIA [None]
  - ARTHROPOD BITE [None]
  - DIARRHOEA [None]
  - ERYTHEMA [None]
  - EYE SWELLING [None]
  - FATIGUE [None]
  - PRURITUS [None]
  - THERAPEUTIC RESPONSE DECREASED [None]
  - VITAMIN D DECREASED [None]
  - WEIGHT INCREASED [None]
